FAERS Safety Report 5495059-7 (Version None)
Quarter: 2007Q4

REPORT INFORMATION
  Report Type: 
  Country: None (occurrence: None)
  Receive Date: 20071024
  Receipt Date: 20071010
  Transmission Date: 20080405
  Serious: Yes (Hospitalization)
  Sender: FDA-Public Use
  Company Number: GB-RANBAXY-2007RR-10667

PATIENT

DRUGS (13)
  1. DICLOFENAC SODIUM TABLETS 50MG [Suspect]
     Dosage: 50 MG, TID
     Route: 048
     Dates: start: 20070819, end: 20070822
  2. IBUPROFEN [Suspect]
     Dosage: 400 MG, TID
     Route: 048
     Dates: start: 20070901, end: 20070905
  3. ADCAL-D3 [Concomitant]
  4. CO-CODAMOL [Concomitant]
  5. DIGOXIN [Concomitant]
     Dosage: 250 UG, QD
  6. LATANOPROST [Concomitant]
  7. OMEPRAZOLE [Concomitant]
  8. PERINDOPRIL ERBUMINE [Concomitant]
  9. PRAVASTATIN [Concomitant]
     Dosage: 40 MG, QD
  10. SERETIDE [Concomitant]
  11. LEVOTHYROXINE SODIUM [Concomitant]
     Dosage: 50 UG, QD
  12. TIOTROPIUM BROMIDE [Concomitant]
     Dosage: 18 UG, UNK
  13. WARFARIN SODIUM [Concomitant]

REACTIONS (1)
  - CONFUSIONAL STATE [None]
